FAERS Safety Report 21915741 (Version 1)
Quarter: 2023Q1

REPORT INFORMATION
  Report Type: Spontaneous
  Country: US (occurrence: None)
  Receive Date: 20230125
  Receipt Date: 20230125
  Transmission Date: 20230418
  Serious: Yes (Other)
  Sender: FDA-Public Use
  Company Number: None

PATIENT
  Age: 83 Year
  Sex: Female

DRUGS (15)
  1. AMBRISENTAN [Suspect]
     Active Substance: AMBRISENTAN
     Indication: Portopulmonary hypertension
     Dosage: FREQUENCY : DAILY;?
     Route: 048
     Dates: start: 20221117
  2. SILDENAFIL [Concomitant]
     Active Substance: SILDENAFIL
  3. ONDANSETRON [Concomitant]
     Active Substance: ONDANSETRON
  4. TIZANIDINE [Concomitant]
     Active Substance: TIZANIDINE
  5. PREGABALIN [Concomitant]
     Active Substance: PREGABALIN
  6. MORPHINE [Concomitant]
     Active Substance: MORPHINE
  7. OXYCODONE [Concomitant]
     Active Substance: OXYCODONE
  8. TORSEMIDE [Concomitant]
     Active Substance: TORSEMIDE
  9. LOSARTAN [Concomitant]
     Active Substance: LOSARTAN
  10. FUROSEMIDE [Concomitant]
     Active Substance: FUROSEMIDE
  11. SPIRONOLACTONE [Concomitant]
     Active Substance: SPIRONOLACTONE
  12. CARVEDILOL [Concomitant]
     Active Substance: CARVEDILOL
  13. ESTRADIOL [Concomitant]
     Active Substance: ESTRADIOL
  14. OMEPRAZOLE [Concomitant]
     Active Substance: OMEPRAZOLE
  15. CRANBERRY CONCENTRATE [Concomitant]
     Active Substance: CRANBERRY CONCENTRATE

REACTIONS (2)
  - Oedema peripheral [None]
  - Therapy cessation [None]

NARRATIVE: CASE EVENT DATE: 20230124
